FAERS Safety Report 9189584 (Version 2)
Quarter: 2013Q2

REPORT INFORMATION
  Report Type: Report from Study
  Country: US (occurrence: US)
  Receive Date: 20130326
  Receipt Date: 20130606
  Transmission Date: 20140414
  Serious: Yes (Other)
  Sender: FDA-Public Use
  Company Number: US-JNJFOC-20130311172

PATIENT
  Sex: Male

DRUGS (11)
  1. SIMPONI [Suspect]
     Indication: RHEUMATOID ARTHRITIS
     Route: 058
     Dates: start: 201103, end: 2012
  2. SIMPONI [Suspect]
     Indication: RHEUMATOID ARTHRITIS
     Route: 058
     Dates: start: 201305
  3. SIMPONI [Suspect]
     Indication: RHEUMATOID ARTHRITIS
     Route: 058
     Dates: start: 2009, end: 2011
  4. LISINOPRIL [Concomitant]
     Indication: HYPERTENSION
  5. VERAPAMIL [Concomitant]
     Indication: HYPERTENSION
  6. SULFASALAZINE [Concomitant]
     Dates: start: 201212
  7. GABAPENTIN [Concomitant]
     Dates: start: 2013
  8. VITAMIN D [Concomitant]
  9. AMBIEN [Concomitant]
  10. LORAZEPAM [Concomitant]
  11. PLAQUENIL [Concomitant]
     Dates: start: 201212

REACTIONS (2)
  - Prostate cancer [Not Recovered/Not Resolved]
  - Prostate cancer metastatic [Not Recovered/Not Resolved]
